FAERS Safety Report 4588259-1 (Version None)
Quarter: 2005Q1

REPORT INFORMATION
  Report Type: 
  Country: None (occurrence: None)
  Receive Date: 20050216
  Receipt Date: 20050207
  Transmission Date: 20050727
  Serious: Yes (Hospitalization)
  Sender: FDA-Public Use
  Company Number: MK200502-0110-1

PATIENT
  Age: 70 Year
  Sex: Male

DRUGS (1)
  1. LIQUI-COAT HD 150ML 210%W/V BARIUM SULFATE SUSP [Suspect]
     Indication: GASTRIC DISORDER
     Dosage: ONE TIME, PO
     Route: 048

REACTIONS (5)
  - ASPIRATION [None]
  - CHEST X-RAY ABNORMAL [None]
  - DYSPNOEA [None]
  - HYPOXIA [None]
  - PYREXIA [None]
